FAERS Safety Report 20115916 (Version 1)
Quarter: 2021Q4

REPORT INFORMATION
  Report Type: Spontaneous
  Country: CN (occurrence: CN)
  Receive Date: 20211126
  Receipt Date: 20211126
  Transmission Date: 20220303
  Serious: Yes (Hospitalization)
  Sender: FDA-Public Use
  Company Number: CN-ABBVIE-21K-035-4175870-00

PATIENT
  Age: 73 Year
  Sex: Female
  Weight: 70 kg

DRUGS (17)
  1. VALPROATE SODIUM [Suspect]
     Active Substance: VALPROATE SODIUM
     Indication: Cerebral haemorrhage
     Dosage: NASAL FEEDING
     Route: 065
     Dates: start: 20200510, end: 20200609
  2. NIMODIPINE [Suspect]
     Active Substance: NIMODIPINE
     Indication: Cerebral haemorrhage
     Dosage: NASAL FEEDING
     Route: 065
     Dates: start: 20200510, end: 20200611
  3. POTASSIUM CHLORIDE [Suspect]
     Active Substance: POTASSIUM CHLORIDE
     Indication: Metabolic disorder
     Dosage: NASAL FEEDING
     Route: 065
     Dates: start: 20200510, end: 20200609
  4. AMBROXOL HYDROCHLORIDE [Suspect]
     Active Substance: AMBROXOL HYDROCHLORIDE
     Indication: Pneumonia
     Dosage: NASAL FEEDING
     Route: 065
     Dates: start: 20200510, end: 20200609
  5. AMLODIPINE BESYLATE [Suspect]
     Active Substance: AMLODIPINE BESYLATE
     Indication: Hypertension
     Dosage: NASAL FEEDING
     Route: 065
     Dates: start: 20200510, end: 20200611
  6. EBASTINE [Concomitant]
     Active Substance: EBASTINE
     Indication: Allergy prophylaxis
     Route: 048
  7. TRIAMCINOLONE ACETONIDE [Concomitant]
     Active Substance: TRIAMCINOLONE ACETONIDE
     Indication: Allergy prophylaxis
  8. ECONAZOLE NITRATE [Concomitant]
     Active Substance: ECONAZOLE NITRATE
     Indication: Allergy prophylaxis
     Dosage: EXTERNAL APPLICATION
  9. CALCIUM GLUCONATE [Concomitant]
     Active Substance: CALCIUM GLUCONATE
     Indication: Product used for unknown indication
  10. VITAMIN C [Concomitant]
     Active Substance: ASCORBIC ACID
     Indication: Product used for unknown indication
     Route: 041
  11. DEXAMETHASONE [Concomitant]
     Active Substance: DEXAMETHASONE
     Indication: Product used for unknown indication
     Route: 040
  12. LEVOFLOXACIN [Concomitant]
     Active Substance: LEVOFLOXACIN
     Indication: Infection prophylaxis
     Route: 042
  13. CIMETIDINE [Concomitant]
     Active Substance: CIMETIDINE
     Indication: Allergy prophylaxis
     Route: 041
  14. CIMETIDINE [Concomitant]
     Active Substance: CIMETIDINE
     Indication: Prophylaxis
  15. BISMUTH [Concomitant]
     Active Substance: BISMUTH
     Indication: Prophylaxis
  16. SILIBININ [Concomitant]
     Active Substance: SILIBININ
     Indication: Hepatic function abnormal
  17. MAGNESIUM ISOGLYCYRRHIZINATE [Concomitant]
     Active Substance: MAGNESIUM ISOGLYCYRRHIZINATE
     Indication: Hepatic function abnormal

REACTIONS (1)
  - Urticaria [Recovering/Resolving]

NARRATIVE: CASE EVENT DATE: 20200608
